FAERS Safety Report 8157090-2 (Version None)
Quarter: 2012Q1

REPORT INFORMATION
  Report Type: 
  Country: None (occurrence: None)
  Receive Date: 20120222
  Receipt Date: 20120214
  Transmission Date: 20120608
  Serious: Yes (Hospitalization)
  Sender: FDA-Public Use
  Company Number: CA-ABBOTT-12P-028-0904779-00

PATIENT
  Sex: Male
  Weight: 74.002 kg

DRUGS (3)
  1. IRON [Concomitant]
     Indication: MINERAL SUPPLEMENTATION
     Route: 048
     Dates: start: 20110601
  2. HUMIRA [Suspect]
     Indication: COLITIS ULCERATIVE
     Route: 058
     Dates: start: 20111012
  3. METHOTREXATE [Concomitant]
     Indication: COLITIS ULCERATIVE
     Dosage: WEEKLY
     Route: 048
     Dates: start: 20120101

REACTIONS (18)
  - INFUSION SITE WARMTH [None]
  - NASOPHARYNGITIS [None]
  - SOFT TISSUE INJURY [None]
  - INSTILLATION SITE PRURITUS [None]
  - MIGRAINE [None]
  - INFUSION SITE SWELLING [None]
  - HYPOPHAGIA [None]
  - HYPERSENSITIVITY [None]
  - INFUSION SITE PAIN [None]
  - VOMITING [None]
  - COLITIS ULCERATIVE [None]
  - DRUG INTOLERANCE [None]
  - HOSPITALISATION [None]
  - FEELING ABNORMAL [None]
  - INFUSION SITE ERYTHEMA [None]
  - PAIN IN EXTREMITY [None]
  - PYREXIA [None]
  - HAEMATOCHEZIA [None]
